FAERS Safety Report 7403432-2 (Version None)
Quarter: 2011Q2

REPORT INFORMATION
  Report Type: 
  Country: None (occurrence: None)
  Receive Date: 20110408
  Receipt Date: 20110323
  Transmission Date: 20111010
  Serious: Yes (Hospitalization)
  Sender: FDA-Public Use
  Company Number: A0920338A

PATIENT
  Sex: Female
  Weight: 112.7 kg

DRUGS (2)
  1. AVANDAMET [Suspect]
     Route: 048
  2. AVANDIA [Suspect]
     Dosage: 4MG PER DAY
     Route: 048

REACTIONS (2)
  - ANGINA UNSTABLE [None]
  - CORONARY ARTERY DISEASE [None]
